FAERS Safety Report 12691249 (Version 1)
Quarter: 2016Q3

REPORT INFORMATION
  Report Type: Spontaneous
  Country: FR (occurrence: FR)
  Receive Date: 20160826
  Receipt Date: 20160826
  Transmission Date: 20161109
  Serious: Yes (Death, Hospitalization)
  Sender: FDA-Public Use
  Company Number: FR-MYLANLABS-2016M1035199

PATIENT

DRUGS (13)
  1. DOXORUBICINE TEVA [Suspect]
     Active Substance: DOXORUBICIN
     Indication: CHEMOTHERAPY
     Dosage: 97 MG, UNK
     Route: 042
     Dates: start: 20160106, end: 20160106
  2. ZYLORIC [Concomitant]
     Active Substance: ALLOPURINOL
     Indication: PROPHYLAXIS
     Dosage: 100 MG, UNK
     Route: 048
  3. ETOPOSIDE TEVA [Suspect]
     Active Substance: ETOPOSIDE
     Indication: CHEMOTHERAPY
     Dosage: 190 MG, UNK
     Route: 042
     Dates: start: 20160107, end: 20160108
  4. ZELITREX [Concomitant]
     Active Substance: VALACYCLOVIR HYDROCHLORIDE
     Indication: PROPHYLAXIS
     Dosage: 500 MG, BID
     Route: 048
  5. CORTANCYL [Suspect]
     Active Substance: PREDNISONE
     Indication: CHEMOTHERAPY
     Dosage: 115 MG, UNK
     Route: 048
     Dates: start: 20160109, end: 20160110
  6. METHOTREXATE. [Suspect]
     Active Substance: METHOTREXATE
     Indication: CHEMOTHERAPY
     Dosage: UNK
     Route: 037
     Dates: start: 20160106, end: 20160106
  7. VINCRISTINE HOSPIRA [Suspect]
     Active Substance: VINCRISTINE
     Indication: CHEMOTHERAPY
     Dosage: 2 MG, UNK
     Route: 042
     Dates: start: 20160106, end: 20160106
  8. BACTRIM [Concomitant]
     Active Substance: SULFAMETHOXAZOLE\TRIMETHOPRIM
     Indication: PROPHYLAXIS
     Route: 048
  9. LEDERFOLINE [Concomitant]
     Active Substance: LEUCOVORIN CALCIUM
     Indication: PROPHYLAXIS
     Dosage: 25 MG, QW
     Route: 048
  10. METHYLPREDNISOLONE MYLAN [Suspect]
     Active Substance: METHYLPREDNISOLONE
     Indication: CHEMOTHERAPY
     Dosage: 100 MG, UNK
     Route: 042
     Dates: start: 20160106, end: 20160108
  11. ENDOXAN                            /00021101/ [Suspect]
     Active Substance: CYCLOPHOSPHAMIDE
     Indication: CHEMOTHERAPY
     Dosage: 1450 MG, UNK
     Route: 042
     Dates: start: 20160106, end: 20160106
  12. ONDANSETRON ACCORD [Concomitant]
     Active Substance: ONDANSETRON
     Indication: PRODUCT USED FOR UNKNOWN INDICATION
     Dosage: 8 MG, UNK
     Route: 042
     Dates: start: 20160106, end: 20160108
  13. GRANOCYTE [Concomitant]
     Active Substance: LENOGRASTIM
     Indication: PRODUCT USED FOR UNKNOWN INDICATION
     Dosage: UNK
     Dates: start: 20160111, end: 20160117

REACTIONS (3)
  - Febrile bone marrow aplasia [Fatal]
  - Septic shock [Fatal]
  - Acute prerenal failure [Fatal]

NARRATIVE: CASE EVENT DATE: 20160116
